FAERS Safety Report 8856962 (Version 1)
Quarter: 2012Q4

REPORT INFORMATION
  Report Type: 
  Country: US (occurrence: US)
  Receive Date: 20121023
  Receipt Date: 20121023
  Transmission Date: 20130627
  Serious: No
  Sender: FDA-Public Use
  Company Number: US-AMGEN-USASP2012055566

PATIENT
  Sex: Male
  Weight: 79.37 kg

DRUGS (4)
  1. ENBREL [Suspect]
     Indication: PRODUCT USED FOR UNKNOWN INDICATION
     Dosage: 50 mg, qwk
     Route: 058
  2. CLOBETASOL [Concomitant]
     Dosage: 0.05 %, UNK
  3. METHOTREXATE [Concomitant]
     Dosage: 250 mg, UNK
  4. ALEVE [Concomitant]
     Dosage: 220 mg, UNK

REACTIONS (1)
  - Injection site rash [Unknown]
